FAERS Safety Report 7170319-2 (Version None)
Quarter: 2010Q4

REPORT INFORMATION
  Report Type: 
  Country: None (occurrence: None)
  Receive Date: 20101217
  Receipt Date: 20101213
  Transmission Date: 20110411
  Serious: Yes (Death, Other)
  Sender: FDA-Public Use
  Company Number: US-PFIZER INC-2010171558

PATIENT
  Sex: Male

DRUGS (1)
  1. CHANTIX [Suspect]
     Dosage: UNK
     Route: 048
     Dates: start: 20081101

REACTIONS (5)
  - AGITATION [None]
  - ANXIETY [None]
  - COMPLETED SUICIDE [None]
  - DEPRESSION [None]
  - INSOMNIA [None]
